FAERS Safety Report 5642883-3 (Version None)
Quarter: 2008Q1

REPORT INFORMATION
  Report Type: 
  Country: None (occurrence: None)
  Receive Date: 20080228
  Receipt Date: 20080220
  Transmission Date: 20080703
  Serious: Yes (Hospitalization)
  Sender: FDA-Public Use
  Company Number: PHNU2008DE00561

PATIENT
  Age: 75 Year
  Sex: Female
  Weight: 85 kg

DRUGS (2)
  1. ARELIX TABLET [Concomitant]
     Dosage: 3 MG, QD
     Route: 048
     Dates: start: 20000101
  2. DIOVAN [Suspect]
     Dosage: UNK, UNK
     Route: 048
     Dates: start: 20000101

REACTIONS (3)
  - BLOOD PRESSURE INADEQUATELY CONTROLLED [None]
  - EPISTAXIS [None]
  - SCLEROTHERAPY [None]
